FAERS Safety Report 24235231 (Version 3)
Quarter: 2025Q1

REPORT INFORMATION
  Report Type: Spontaneous
  Country: US (occurrence: US)
  Receive Date: 20240821
  Receipt Date: 20250331
  Transmission Date: 20250408
  Serious: No
  Sender: SANOFI AVENTIS
  Company Number: US-SA-SAC20240816000651

PATIENT
  Age: 2 Year
  Sex: Male

DRUGS (4)
  1. DUPIXENT [Suspect]
     Active Substance: DUPILUMAB
     Indication: Dermatitis atopic
     Dosage: 200 MG, Q4W
     Route: 058
     Dates: start: 20240730
  2. DUPIXENT [Suspect]
     Active Substance: DUPILUMAB
     Indication: Asthma
     Dosage: 300 MG, Q4W
     Route: 058
     Dates: start: 202410
  3. DUPIXENT [Suspect]
     Active Substance: DUPILUMAB
     Indication: Hypersensitivity
  4. DUPIXENT [Suspect]
     Active Substance: DUPILUMAB
     Indication: Food allergy

REACTIONS (10)
  - Periorbital swelling [Unknown]
  - Swelling face [Unknown]
  - Illness [Recovered/Resolved]
  - Influenza [Recovered/Resolved]
  - Eczema [Recovered/Resolved]
  - Oropharyngeal pain [Recovered/Resolved]
  - Erythema [Unknown]
  - Ocular hyperaemia [Unknown]
  - Eye pruritus [Recovered/Resolved]
  - Off label use [Unknown]

NARRATIVE: CASE EVENT DATE: 20240730
